FAERS Safety Report 7329142-8 (Version None)
Quarter: 2011Q1

REPORT INFORMATION
  Report Type: 
  Country: None (occurrence: None)
  Receive Date: 20110222
  Receipt Date: 20110207
  Transmission Date: 20110831
  Serious: Yes (Death, Life-Threatening, Other)
  Sender: FDA-Public Use
  Company Number: DSJ-2011-00695

PATIENT
  Age: 44 Year
  Sex: Female
  Weight: 57 kg

DRUGS (10)
  1. LASIX [Suspect]
     Dosage: 20 MG
     Dates: end: 20101205
  2. OLMETEC (OLMESARTAN MEDOXOMIL) (TABLET) (OLMESARTAN [Suspect]
     Indication: ESSENTIAL HYPERTENSION
     Dosage: 10 MG, PER ORAL
     Route: 048
     Dates: start: 20100927, end: 20101205
  3. ASPIRIN [Concomitant]
  4. DOXAZOSIN MESYLATE [Suspect]
     Dosage: 1 MG
     Dates: end: 20101205
  5. HALOPERIDOL [Concomitant]
  6. CEREKINON (TRIMEBUTINE MALEATE) [Concomitant]
  7. AKINETON [Concomitant]
  8. PERSANTIN [Concomitant]
  9. OLOPATADINE HYDROCHLORIDE [Concomitant]
  10. SINGULAIR [Concomitant]

REACTIONS (3)
  - HYPOTENSION [None]
  - TACHYCARDIA [None]
  - CARDIAC FAILURE [None]
